FAERS Safety Report 8812096 (Version 1)
Quarter: 2012Q4

REPORT INFORMATION
  Report Type: 
  Country: CN (occurrence: CN)
  Receive Date: 20120927
  Receipt Date: 20120927
  Transmission Date: 20130627
  Serious: Yes (Other)
  Sender: FDA-Public Use
  Company Number: CN-ROCHE-1137723

PATIENT

DRUGS (4)
  1. AVASTIN [Suspect]
     Indication: COLORECTAL CANCER
     Route: 065
  2. FOLINIC ACID [Concomitant]
     Indication: COLORECTAL CANCER
  3. FLUOROURACIL [Concomitant]
     Indication: COLORECTAL CANCER
  4. IRINOTECAN [Concomitant]
     Indication: COLORECTAL CANCER

REACTIONS (1)
  - Generalised oedema [Recovered/Resolved]
